FAERS Safety Report 8778034 (Version 1)
Quarter: 2012Q4

REPORT INFORMATION
  Report Type: 
  Country: US (occurrence: US)
  Receive Date: 20120911
  Receipt Date: 20120911
  Transmission Date: 20130627
  Serious: No
  Sender: FDA-Public Use
  Company Number: US-PFIZER INC-2012221071

PATIENT
  Age: 76 Year
  Sex: Female
  Weight: 88.9 kg

DRUGS (7)
  1. ROBITUSSIN PEAK COLD COUGH PLUS CHEST CONGESTION DM [Suspect]
     Indication: COUGH
     Dosage: UNK, 2x/day
     Dates: start: 20120905, end: 20120905
  2. ROBITUSSIN PEAK COLD COUGH PLUS CHEST CONGESTION DM [Suspect]
     Indication: PULMONARY CONGESTION
  3. NORVASC [Suspect]
     Indication: HYPERTENSION
     Dosage: 5 mg, daily
  4. ACETYLSALICYLIC ACID [Suspect]
     Dosage: 81 mg, daily
  5. TOPROL XL [Suspect]
     Indication: CARDIAC DISORDER
     Dosage: 25 mg, daily
  6. CRESTOR [Suspect]
     Indication: BLOOD CHOLESTEROL INCREASED
     Dosage: 20 mg, daily
  7. ZETIA [Suspect]
     Indication: BLOOD CHOLESTEROL INCREASED
     Dosage: 10 mg, daily

REACTIONS (3)
  - Headache [Recovering/Resolving]
  - Hyperhidrosis [Not Recovered/Not Resolved]
  - Body temperature increased [Not Recovered/Not Resolved]
